FAERS Safety Report 5320098-6 (Version None)
Quarter: 2007Q2

REPORT INFORMATION
  Report Type: 
  Country: None (occurrence: None)
  Receive Date: 20070503
  Receipt Date: 20070424
  Transmission Date: 20071010
  Serious: Yes (Hospitalization)
  Sender: FDA-Public Use
  Company Number: 163-21880-07030776

PATIENT
  Age: 60 Year
  Sex: Male

DRUGS (5)
  1. REVLIMID [Suspect]
     Indication: MULTIPLE MYELOMA
     Dosage: 25 MG, FOR 21 DAYS EVERY 28 DAYS, ORAL
     Route: 048
     Dates: start: 20061121, end: 20070305
  2. LIPID (LIPIDS NOS) [Concomitant]
  3. MULTIVITAMIN [Concomitant]
  4. TUSSIONEX (TUSSIONEX ^PENNWALT^) [Concomitant]
  5. FOSAMAX [Concomitant]

REACTIONS (9)
  - ANAEMIA [None]
  - BLOOD COUNT ABNORMAL [None]
  - BRONCHITIS [None]
  - DRUG EFFECT DECREASED [None]
  - LEUKOPENIA [None]
  - NEUTROPHIL COUNT DECREASED [None]
  - PNEUMONIA [None]
  - SINUSITIS [None]
  - VIRAL INFECTION [None]
